FAERS Safety Report 22588510 (Version 1)
Quarter: 2023Q2

REPORT INFORMATION
  Report Type: Spontaneous
  Country: JP (occurrence: JP)
  Receive Date: 20230612
  Receipt Date: 20230612
  Transmission Date: 20230722
  Serious: Yes (Other)
  Sender: FDA-Public Use
  Company Number: JP-ABBVIE-5284374

PATIENT
  Age: 50 Year
  Sex: Male

DRUGS (3)
  1. ASENAPINE MALEATE [Suspect]
     Active Substance: ASENAPINE MALEATE
     Indication: Frontotemporal dementia
     Route: 060
  2. QUETIAPINE [Suspect]
     Active Substance: QUETIAPINE
     Indication: Frontotemporal dementia
     Dosage: ONCE DAILY AT A DOSE OF 200 MG/DAY
     Route: 048
  3. QUETIAPINE [Suspect]
     Active Substance: QUETIAPINE
     Indication: Frontotemporal dementia
     Dosage: THRICE DAILY AT A DOSE OF 75 MG/DAY
     Route: 048

REACTIONS (6)
  - Mydriasis [Unknown]
  - Off label use [Unknown]
  - Salivary hypersecretion [Unknown]
  - Dysphagia [Unknown]
  - Agitation [Unknown]
  - Grip strength [Unknown]
